FAERS Safety Report 22256266 (Version 1)
Quarter: 2023Q2

REPORT INFORMATION
  Report Type: Spontaneous
  Country: US (occurrence: None)
  Receive Date: 20230425
  Receipt Date: 20230425
  Transmission Date: 20230722
  Serious: Yes (Hospitalization)
  Sender: FDA-Public Use
  Company Number: None

PATIENT
  Age: 83 Year
  Sex: Female
  Weight: 58.06 kg

DRUGS (12)
  1. CAPECITABINE [Suspect]
     Active Substance: CAPECITABINE
     Indication: Pancreatic carcinoma
     Dosage: FREQUENCY : TWICE A DAY;?
     Route: 048
     Dates: start: 202303
  2. BISACODYL [Concomitant]
     Active Substance: BISACODYL
  3. BISOPROLOL [Concomitant]
  4. BYSTOLIC [Concomitant]
     Active Substance: NEBIVOLOL HYDROCHLORIDE
  5. COENZYME Q-10 [Concomitant]
  6. KRILL OIL [Concomitant]
  7. MULTI VITAMIN [Concomitant]
  8. ONDANSETRON [Concomitant]
  9. POTASSIUM BICARD-CITRIC ACID [Concomitant]
  10. PSYLLIUM HUSK [Concomitant]
  11. SIMVASTATIN [Concomitant]
  12. VITAMIN D3-FOLIC ACID [Concomitant]

REACTIONS (3)
  - Diarrhoea [None]
  - Asthenia [None]
  - Therapy interrupted [None]
